FAERS Safety Report 12146359 (Version 1)
Quarter: 2016Q1

REPORT INFORMATION
  Report Type: Spontaneous
  Country: US (occurrence: US)
  Receive Date: 20160304
  Receipt Date: 20160304
  Transmission Date: 20160526
  Serious: No
  Sender: FDA-Public Use
  Company Number: US-MYLANLABS-2015M1046818

PATIENT
  Age: 29 Year
  Sex: Female

DRUGS (4)
  1. LIDOCAINE PATCH [Suspect]
     Active Substance: LIDOCAINE
     Dosage: 1 DF QD 12 HRS ON, 12 HRS OFF
     Route: 003
     Dates: start: 20151204
  2. HYDROCODONE BITARTRATE/PARACETAMOL [Concomitant]
     Dosage: UNK
  3. NO DRUG NAME [Concomitant]
     Dosage: UNK
  4. PREGABALIN. [Concomitant]
     Active Substance: PREGABALIN
     Dosage: UNK

REACTIONS (3)
  - Drug ineffective [Not Recovered/Not Resolved]
  - Product quality issue [Not Recovered/Not Resolved]
  - Product adhesion issue [Not Recovered/Not Resolved]

NARRATIVE: CASE EVENT DATE: 20151204
